FAERS Safety Report 9730486 (Version 1)
Quarter: 2013Q4

REPORT INFORMATION
  Report Type: Spontaneous
  Country: CN (occurrence: CN)
  Receive Date: 20131202
  Receipt Date: 20131202
  Transmission Date: 20140711
  Serious: Yes (Other)
  Sender: FDA-Public Use
  Company Number: CN-BAYER-2013-142701

PATIENT
  Age: 78 Year
  Sex: Male

DRUGS (24)
  1. CIPROFLOXACIN [Suspect]
     Indication: EMPHYSEMA
     Dosage: 100 ML, BID
     Route: 042
     Dates: start: 201212
  2. CIPROFLOXACIN [Suspect]
     Indication: INFECTION
  3. CIPROFLOXACIN [Suspect]
     Indication: COR PULMONALE CHRONIC
  4. CIPROFLOXACIN [Suspect]
     Indication: RIGHT VENTRICULAR FAILURE
  5. CIPROFLOXACIN [Suspect]
     Indication: BRONCHITIS CHRONIC
  6. DEXAMETHASONE [Suspect]
     Indication: RIGHT VENTRICULAR FAILURE
     Dosage: 5 MG, QD
     Route: 042
     Dates: start: 201212
  7. DEXAMETHASONE [Suspect]
     Indication: COR PULMONALE CHRONIC
  8. DEXAMETHASONE [Suspect]
     Indication: INFECTION
  9. DEXAMETHASONE [Suspect]
     Indication: EMPHYSEMA
  10. DEXAMETHASONE [Suspect]
     Indication: BRONCHITIS CHRONIC
  11. PIPERACILLIN W/TAZOBACTAM [Concomitant]
     Indication: BRONCHITIS CHRONIC
     Dosage: DAILY DOSE 4.5 G
     Route: 042
     Dates: start: 201212
  12. PIPERACILLIN W/TAZOBACTAM [Concomitant]
     Indication: EMPHYSEMA
  13. PIPERACILLIN W/TAZOBACTAM [Concomitant]
     Indication: INFECTION
  14. PIPERACILLIN W/TAZOBACTAM [Concomitant]
     Indication: COR PULMONALE CHRONIC
  15. PIPERACILLIN W/TAZOBACTAM [Concomitant]
     Indication: RIGHT VENTRICULAR FAILURE
  16. AMINOPHYLLINE [Concomitant]
     Indication: BRONCHITIS CHRONIC
     Dosage: DAILY DOSE .25 G
     Route: 042
     Dates: start: 201212
  17. AMINOPHYLLINE [Concomitant]
     Indication: EMPHYSEMA
  18. AMINOPHYLLINE [Concomitant]
     Indication: INFECTION
  19. AMINOPHYLLINE [Concomitant]
     Indication: COR PULMONALE CHRONIC
  20. AMINOPHYLLINE [Concomitant]
     Indication: RIGHT VENTRICULAR FAILURE
  21. CEPHALOSPORIN C [Concomitant]
     Indication: BRONCHITIS CHRONIC
     Dosage: UNK
  22. CEPHALOSPORIN C [Concomitant]
     Indication: EMPHYSEMA
  23. HYDROCHLOROTHIAZIDE [Concomitant]
     Indication: EMPHYSEMA
     Dosage: UNK
  24. HYDROCHLOROTHIAZIDE [Concomitant]
     Indication: BRONCHITIS CHRONIC

REACTIONS (10)
  - Mental disorder [Recovered/Resolved]
  - Agitation [Recovered/Resolved]
  - Restlessness [Recovered/Resolved]
  - Speech disorder [Recovered/Resolved]
  - Dysarthria [Recovered/Resolved]
  - Abnormal behaviour [Recovered/Resolved]
  - Delirium [Recovered/Resolved]
  - Lethargy [Recovered/Resolved]
  - Trance [Recovered/Resolved]
  - Hallucination [Recovered/Resolved]
